FAERS Safety Report 6673218-5 (Version None)
Quarter: 2010Q2

REPORT INFORMATION
  Report Type: 
  Country: None (occurrence: None)
  Receive Date: 20100408
  Receipt Date: 20100330
  Transmission Date: 20101027
  Serious: Yes (Hospitalization, Other)
  Sender: FDA-Public Use
  Company Number: US-AMGEN-KDL403008

PATIENT
  Sex: Male
  Weight: 129.4 kg

DRUGS (2)
  1. PROCRIT [Suspect]
     Indication: RENAL FAILURE CHRONIC
     Dates: start: 20030101
  2. UNSPECIFIED ANTIHYPERTENSIVE AGENT [Concomitant]

REACTIONS (2)
  - ANAEMIA [None]
  - HAEMODIALYSIS [None]
